FAERS Safety Report 7421055-6 (Version None)
Quarter: 2011Q2

REPORT INFORMATION
  Report Type: 
  Country: None (occurrence: None)
  Receive Date: 20110418
  Receipt Date: 20110406
  Transmission Date: 20111010
  Serious: Yes (Other)
  Sender: FDA-Public Use
  Company Number: US-RB-024408-11

PATIENT
  Age: 50 Year
  Sex: Female

DRUGS (1)
  1. MUCINEX DM [Suspect]
     Dosage: PATIENT STARTED DOSING ON 28-MAR-2011 TAKING TWO TABLETS EVERY 12 HOURS.
     Route: 048

REACTIONS (2)
  - VAGINAL HAEMORRHAGE [None]
  - INCORRECT DRUG ADMINISTRATION DURATION [None]
